FAERS Safety Report 9470103 (Version 4)
Quarter: 2013Q4

REPORT INFORMATION
  Report Type: Spontaneous
  Country: US (occurrence: US)
  Receive Date: 20130822
  Receipt Date: 20131206
  Transmission Date: 20140711
  Serious: Yes (Hospitalization)
  Sender: FDA-Public Use
  Company Number: US-ASTELLAS-2013US008872

PATIENT
  Age: 95 Year
  Sex: Male

DRUGS (1)
  1. XTANDI [Suspect]
     Indication: PROSTATE CANCER
     Dosage: 160 MG, UID/QD
     Route: 048
     Dates: start: 20130617

REACTIONS (4)
  - Drug dose omission [Unknown]
  - Pneumonia [Unknown]
  - Asthenia [Unknown]
  - Hypertension [Unknown]
